FAERS Safety Report 5790126-2 (Version None)
Quarter: 2008Q2

REPORT INFORMATION
  Report Type: 
  Country: None (occurrence: None)
  Receive Date: 20080626
  Receipt Date: 20080317
  Transmission Date: 20081010
  Serious: No
  Sender: FDA-Public Use
  Company Number: A0682361A

PATIENT
  Sex: Female

DRUGS (1)
  1. ALLI [Suspect]
     Indication: WEIGHT LOSS DIET
     Route: 048

REACTIONS (20)
  - ABDOMINAL DISTENSION [None]
  - BINGE EATING [None]
  - CHANGE OF BOWEL HABIT [None]
  - CONSTIPATION [None]
  - DEPRESSION [None]
  - DRUG INEFFECTIVE [None]
  - FAECAL INCONTINENCE [None]
  - FLATULENCE [None]
  - FOOD CRAVING [None]
  - FRUSTRATION [None]
  - HEADACHE [None]
  - HUNGER [None]
  - ILL-DEFINED DISORDER [None]
  - INCREASED APPETITE [None]
  - MALAISE [None]
  - NAUSEA [None]
  - OLIGODIPSIA [None]
  - PREGNANCY [None]
  - STARVATION [None]
  - WEIGHT INCREASED [None]
